FAERS Safety Report 9354630 (Version 4)
Quarter: 2014Q1

REPORT INFORMATION
  Report Type: Report from Study
  Country: GB (occurrence: GB)
  Receive Date: 20130618
  Receipt Date: 20140331
  Transmission Date: 20141002
  Serious: Yes (Hospitalization, Other)
  Sender: FDA-Public Use
  Company Number: GB-009507513-1306GBR004626

PATIENT
  Age: 45 Year
  Sex: Female
  Weight: 59.6 kg

DRUGS (20)
  1. POSACONAZOLE [Suspect]
     Indication: ANTIFUNGAL PROPHYLAXIS
     Dosage: BID (STRENGTH: 400 MG)
     Route: 048
     Dates: start: 20130526, end: 20130607
  2. URSODIOL [Concomitant]
     Indication: NUTRITIONAL SUPPLEMENTATION
     Dosage: 600 MG, BID
     Route: 048
  3. SLOW SODIUM [Concomitant]
     Indication: NUTRITIONAL SUPPLEMENTATION
     Dosage: DOSE: 1200 MG, TID
     Route: 048
     Dates: end: 20130525
  4. OMEPRAZOLE [Concomitant]
     Indication: PROPHYLAXIS
     Dosage: 20 MG, QD
     Route: 048
  5. ORAMORPH [Concomitant]
     Indication: ANALGESIC THERAPY
     Dosage: 2 ML, PRN
     Route: 048
     Dates: end: 20130525
  6. COTRIMAZOLE [Concomitant]
     Indication: PROPHYLAXIS
     Dosage: 480 MG, QD
     Route: 048
     Dates: start: 20130526
  7. DOCUSATE SODIUM [Concomitant]
     Indication: PROPHYLAXIS
     Dosage: 200 MG, BID
     Route: 048
     Dates: start: 20130526
  8. FERROUS FUMARATE [Concomitant]
     Indication: PROPHYLAXIS
     Dosage: 10 ML, BID
     Route: 048
     Dates: start: 20130526
  9. METOCLOPRAMIDE [Concomitant]
     Indication: PROPHYLAXIS
     Dosage: 10 MG, TID
     Route: 042
     Dates: start: 20130526, end: 20130602
  10. NYSTATIN [Concomitant]
     Indication: TRANSPLANT
     Dosage: 1 ML, QID
     Route: 048
     Dates: start: 20130526
  11. PIPERACILLIN SODIUM (+) TAZOBACTAM SODIUM [Concomitant]
     Indication: PROPHYLAXIS
     Dosage: 4.5 G, TID
     Route: 042
     Dates: start: 20130525
  12. ALBUTEROL [Concomitant]
     Indication: PROPHYLAXIS
     Dosage: 2.5 MG, BID, ROUTE: NEBULIZER
     Route: 050
     Dates: start: 20130525, end: 20130602
  13. TOBRAMYCIN [Concomitant]
     Indication: PROPHYLAXIS
     Dosage: 160 MG, BID, ROUTE: NEBULIZER
     Route: 050
     Dates: start: 20130527
  14. TACROLIMUS [Concomitant]
     Indication: TRANSPLANT
     Dosage: DOSE: VARIABLE MG, BID
     Route: 048
     Dates: start: 20130527
  15. VALACYCLOVIR HYDROCHLORIDE [Concomitant]
     Indication: PROPHYLAXIS
     Dosage: 450 MG, QD
     Route: 048
     Dates: start: 20130526
  16. ONDANSETRON [Concomitant]
     Indication: NAUSEA
     Dosage: 4 MG, PRN
     Route: 042
     Dates: start: 20130528
  17. POTASSIUM CHLORIDE [Concomitant]
     Indication: PROPHYLAXIS
     Dosage: DOSE: 10.20  MMOL, PRN
     Route: 042
     Dates: start: 20130525, end: 20130602
  18. REMIFENTANIL HYDROCHLORIDE [Concomitant]
     Indication: ANALGESIC THERAPY
     Dosage: 5 MG, INFUSION
     Route: 042
     Dates: start: 20130525, end: 20130601
  19. CARBOCYSTEINE [Concomitant]
     Indication: PROPHYLAXIS
     Dosage: 750 MG, TID
     Route: 048
     Dates: start: 20130531, end: 20130604
  20. MYCOPHENOLATE MOFETIL [Concomitant]
     Dosage: DOSE: VARIABLE MG, QD (INDICATION: TX)
     Route: 048
     Dates: start: 20130526

REACTIONS (1)
  - Liver disorder [Recovered/Resolved]
